FAERS Safety Report 17843192 (Version 1)
Quarter: 2020Q2

REPORT INFORMATION
  Report Type: Spontaneous
  Country: ES (occurrence: ES)
  Receive Date: 20200530
  Receipt Date: 20200530
  Transmission Date: 20200714
  Serious: Yes (Hospitalization, Other)
  Sender: FDA-Public Use
  Company Number: ES-AUROBINDO-AUR-APL-2020-026482

PATIENT
  Age: 70 Year
  Sex: Female
  Weight: 77.7 kg

DRUGS (5)
  1. METHADONE HYDROCHLORIDE. [Suspect]
     Active Substance: METHADONE HYDROCHLORIDE
     Indication: PAIN
     Dosage: 3 MILLILITER, 3 TIMES A DAY (9 MILLILITER ONCE A DAY)
     Route: 065
     Dates: start: 201611
  2. PALBOCICLIB [Suspect]
     Active Substance: PALBOCICLIB
     Indication: BREAST CANCER METASTATIC
     Dosage: 100 MILLIGRAM
     Route: 065
     Dates: start: 20161116
  3. ALPRAZOLAM. [Suspect]
     Active Substance: ALPRAZOLAM
     Indication: ANXIETY
     Dosage: 0.25 MILLIGRAM (0.25 MG, 1X/DAY/PRN)
     Route: 065
     Dates: start: 20160928
  4. CLOMIPRAMINE [Suspect]
     Active Substance: CLOMIPRAMINE
     Indication: DEPRESSION
     Dosage: 75 MILLIGRAM, TWO TIMES A DAY (150 MG ONCE A DAY)
     Route: 065
  5. FULVESTRANT. [Suspect]
     Active Substance: FULVESTRANT
     Indication: HORMONE RECEPTOR POSITIVE BREAST CANCER
     Dosage: 500 MILLIGRAM (500 MG, CYC (EVERY 28 DAYS))
     Route: 065
     Dates: start: 20161116

REACTIONS (1)
  - Intestinal obstruction [Recovered/Resolved]

NARRATIVE: CASE EVENT DATE: 20200412
